FAERS Safety Report 24580834 (Version 1)
Quarter: 2024Q4

REPORT INFORMATION
  Report Type: Spontaneous
  Country: CN (occurrence: CN)
  Receive Date: 20241105
  Receipt Date: 20241105
  Transmission Date: 20250115
  Serious: Yes (Life-Threatening, Hospitalization)
  Sender: BAYER HEALTHCARE PHARMACEUTICALS INC.
  Company Number: CN-BAYER-2024A157646

PATIENT
  Age: 64 Year
  Sex: Male
  Weight: 80 kg

DRUGS (1)
  1. ULTRAVIST [Suspect]
     Active Substance: IOPROMIDE
     Indication: Arteriogram
     Dosage: 80 ML, ONCE
     Route: 013
     Dates: start: 20241019, end: 20241019

REACTIONS (7)
  - Anaphylactic shock [Recovering/Resolving]
  - Loss of consciousness [Recovered/Resolved]
  - Flushing [None]
  - Hyperhidrosis [None]
  - Blood pressure decreased [Recovered/Resolved]
  - Oxygen saturation decreased [None]
  - Pallor [Recovered/Resolved]

NARRATIVE: CASE EVENT DATE: 20241019
